FAERS Safety Report 20869292 (Version 1)
Quarter: 2022Q2

REPORT INFORMATION
  Report Type: Spontaneous
  Country: US (occurrence: US)
  Receive Date: 20220524
  Receipt Date: 20220524
  Transmission Date: 20220721
  Serious: No
  Sender: FDA-Public Use
  Company Number: US-SA-2022SA144987

PATIENT

DRUGS (2)
  1. CLOBAZAM [Interacting]
     Active Substance: CLOBAZAM
     Indication: Epilepsy
     Dosage: UNK
     Route: 065
  2. CENOBAMATE [Interacting]
     Active Substance: CENOBAMATE
     Indication: Epilepsy
     Dosage: UNK
     Route: 065
     Dates: start: 20200701

REACTIONS (2)
  - Sedation [Unknown]
  - Drug interaction [Unknown]
